FAERS Safety Report 23598097 (Version 2)
Quarter: 2024Q1

REPORT INFORMATION
  Report Type: Report from Study
  Country: KR (occurrence: KR)
  Receive Date: 20240305
  Receipt Date: 20240312
  Transmission Date: 20240409
  Serious: Yes (Hospitalization, Other)
  Sender: FDA-Public Use
  Company Number: KR-TAKEDA-2024TUS018921

PATIENT
  Age: 74 Year
  Sex: Male
  Weight: 66 kg

DRUGS (8)
  1. BRIGATINIB [Suspect]
     Active Substance: BRIGATINIB
     Indication: Non-small cell lung cancer
     Dosage: 90 MILLIGRAM, QD
     Route: 048
     Dates: start: 20230323, end: 20230329
  2. BRIGATINIB [Suspect]
     Active Substance: BRIGATINIB
     Dosage: 180 MILLIGRAM, QD
     Route: 048
     Dates: start: 20230330, end: 20230423
  3. BRIGATINIB [Suspect]
     Active Substance: BRIGATINIB
     Dosage: 180 MILLIGRAM, QD
     Route: 048
     Dates: start: 20230515, end: 20230620
  4. WELLTAMIN [Concomitant]
     Indication: Prophylaxis
     Dosage: UNK UNK, BID
     Route: 048
     Dates: start: 20211215
  5. SURFOLASE [Concomitant]
     Indication: Bronchitis chronic
     Dosage: UNK UNK, BID
     Route: 048
     Dates: start: 20220108
  6. Levopect cr [Concomitant]
     Indication: Bronchitis chronic
     Dosage: UNK UNK, BID
     Route: 048
     Dates: start: 20220914
  7. NEXIUM [Concomitant]
     Active Substance: ESOMEPRAZOLE MAGNESIUM
     Indication: Gastrooesophageal reflux disease
     Dosage: UNK UNK, BID
     Route: 048
     Dates: start: 20220914
  8. SYNATURA [Concomitant]
     Indication: Bronchitis chronic
     Dosage: UNK UNK, BID
     Route: 048
     Dates: start: 20220914

REACTIONS (1)
  - Liver abscess [Recovered/Resolved]

NARRATIVE: CASE EVENT DATE: 20230423
